FAERS Safety Report 6686120-X (Version None)
Quarter: 2010Q2

REPORT INFORMATION
  Report Type: 
  Country: None (occurrence: None)
  Receive Date: 20100419
  Receipt Date: 20100414
  Transmission Date: 20101027
  Serious: Yes (Life-Threatening)
  Sender: FDA-Public Use
  Company Number: FR-ASTRAZENECA-2010SE16463

PATIENT
  Age: 50 Year
  Sex: Female
  Weight: 65 kg

DRUGS (2)
  1. ZOMIG [Suspect]
     Indication: MIGRAINE
     Route: 048
     Dates: end: 20100101
  2. NOMEGESTROL [Suspect]
     Indication: DYSMENORRHOEA
     Dosage: 10 DAYS MONTHLY
     Route: 065
     Dates: start: 20080101, end: 20100101

REACTIONS (1)
  - ISCHAEMIC STROKE [None]
